FAERS Safety Report 5192354-6 (Version None)
Quarter: 2006Q4

REPORT INFORMATION
  Report Type: 
  Country: None (occurrence: None)
  Receive Date: 20061227
  Receipt Date: 20061114
  Transmission Date: 20070319
  Serious: Yes (Death, Hospitalization)
  Sender: FDA-Public Use
  Company Number: CH-BRISTOL-MYERS SQUIBB COMPANY-13578604

PATIENT
  Age: 47 Year
  Sex: Male

DRUGS (9)
  1. ABILIFY [Suspect]
     Indication: ANXIETY
     Route: 048
     Dates: start: 20050201
  2. ABILIFY [Suspect]
     Indication: DRUG DEPENDENCE
     Route: 048
     Dates: start: 20050201
  3. OPIATE SUBSTANCES [Concomitant]
  4. SURMONTIL [Concomitant]
  5. ZOLOFT [Concomitant]
  6. TRANXILIUM [Concomitant]
  7. TETRAHYDROCANNABINOL [Concomitant]
  8. DAFALGAN [Concomitant]
  9. IMOVANE [Concomitant]

REACTIONS (4)
  - BRAIN OEDEMA [None]
  - ENCEPHALOPATHY [None]
  - LOSS OF CONSCIOUSNESS [None]
  - METABOLIC DISORDER [None]
